FAERS Safety Report 6697870-3 (Version None)
Quarter: 2010Q2

REPORT INFORMATION
  Report Type: 
  Country: None (occurrence: None)
  Receive Date: 20100427
  Receipt Date: 20100413
  Transmission Date: 20101027
  Serious: No
  Sender: FDA-Public Use
  Company Number: US-BIOGENIDEC-2010BI012487

PATIENT
  Age: 29 Year
  Sex: Female
  Weight: 65 kg

DRUGS (2)
  1. TYSABRI [Suspect]
     Indication: MULTIPLE SCLEROSIS
     Route: 042
     Dates: start: 20071218, end: 20080814
  2. TYSABRI [Suspect]
     Route: 042
     Dates: start: 20090216

REACTIONS (2)
  - ASTHENIA [None]
  - GASTROOESOPHAGEAL REFLUX DISEASE [None]
